FAERS Safety Report 5240878-5 (Version None)
Quarter: 2007Q1

REPORT INFORMATION
  Report Type: 
  Country: None (occurrence: None)
  Receive Date: 20061208
  Receipt Date: 20050502
  Transmission Date: 20070707
  Serious: Yes (Other)
  Sender: FDA-Public Use
  Company Number: 2005UW06740

PATIENT
  Age: 68 Year
  Sex: Female
  Weight: 63.502 kg

DRUGS (5)
  1. CRESTOR [Suspect]
     Indication: BLOOD CHOLESTEROL INCREASED
     Dosage: 10 MG DAILY PO
     Route: 048
     Dates: start: 20050401
  2. PROZAC [Concomitant]
  3. NORVASC [Concomitant]
  4. ATENOLOL [Concomitant]
  5. SYNTHROID [Concomitant]

REACTIONS (2)
  - EPIGASTRIC DISCOMFORT [None]
  - WEIGHT INCREASED [None]
